FAERS Safety Report 23918748 (Version 1)
Quarter: 2024Q2

REPORT INFORMATION
  Report Type: Spontaneous
  Country: FR (occurrence: FR)
  Receive Date: 20240530
  Receipt Date: 20240530
  Transmission Date: 20240715
  Serious: Yes (Death, Other)
  Sender: FDA-Public Use
  Company Number: FR-AMGEN-FRASP2024102121

PATIENT

DRUGS (1)
  1. BEVACIZUMAB [Suspect]
     Active Substance: BEVACIZUMAB
     Indication: Colorectal cancer
     Dosage: 5 MILLIGRAM/KILOGRAM, Q2WK
     Route: 042

REACTIONS (13)
  - Anaemia [Unknown]
  - Death [Fatal]
  - Fatigue [Unknown]
  - Hypertension [Unknown]
  - Vomiting [Unknown]
  - Diarrhoea [Unknown]
  - Neutrophil count decreased [Unknown]
  - Colorectal cancer [Unknown]
  - Nausea [Unknown]
  - Decreased appetite [Unknown]
  - Asthenia [Unknown]
  - Dysgeusia [Unknown]
  - Treatment noncompliance [Unknown]
